FAERS Safety Report 17490991 (Version 2)
Quarter: 2021Q2

REPORT INFORMATION
  Report Type: Report from Study
  Country: NL (occurrence: NL)
  Receive Date: 20200303
  Receipt Date: 20210525
  Transmission Date: 20210716
  Serious: Yes (Other)
  Sender: FDA-Public Use
  Company Number: NVSC2020NL053271

PATIENT
  Age: 78 Year
  Sex: Female

DRUGS (3)
  1. SANDOSTATIN LAR DEPOT [Suspect]
     Active Substance: OCTREOTIDE ACETATE
     Indication: NEUROENDOCRINE TUMOUR
     Dosage: 30 MG / 2 ML, Q3W (POWDER AND SOLVENT FOR SUSPENSION FOR INJECTION)
     Route: 030
     Dates: start: 20140820
  2. SANDOSTATIN LAR DEPOT [Suspect]
     Active Substance: OCTREOTIDE ACETATE
  3. SANDOSTATIN LAR DEPOT [Suspect]
     Active Substance: OCTREOTIDE ACETATE

REACTIONS (5)
  - Inappropriate schedule of product administration [Unknown]
  - Malignant neoplasm progression [Not Recovered/Not Resolved]
  - Haematochezia [Recovered/Resolved]
  - Metastases to lymph nodes [Not Recovered/Not Resolved]
  - Neuroendocrine tumour [Not Recovered/Not Resolved]

NARRATIVE: CASE EVENT DATE: 20200203
